FAERS Safety Report 11078990 (Version 8)
Quarter: 2018Q1

REPORT INFORMATION
  Report Type: Spontaneous
  Country: US (occurrence: US)
  Receive Date: 20150430
  Receipt Date: 20180118
  Transmission Date: 20180508
  Serious: Yes (Hospitalization, Other)
  Sender: FDA-Public Use
  Company Number: US-PFIZER INC-2015143195

PATIENT
  Age: 72 Year
  Sex: Female
  Weight: 76.2 kg

DRUGS (7)
  1. FASLODEX [Concomitant]
     Active Substance: FULVESTRANT
     Indication: ANTIOESTROGEN THERAPY
     Dosage: UNK, MONTHLY (INJECTION INTO EACH HIP ONCE A MONTH )
     Route: 030
     Dates: start: 201701
  2. IBRANCE [Suspect]
     Active Substance: PALBOCICLIB
     Dosage: 75 MG, CYCLIC (FOR 21 DAYS THEN 7 DAYS OFF)
  3. METOPROLOL. [Concomitant]
     Active Substance: METOPROLOL
     Indication: BLOOD PRESSURE ABNORMAL
     Dosage: UNK
  4. ARIMIDEX [Concomitant]
     Active Substance: ANASTROZOLE
     Indication: BREAST CANCER METASTATIC
     Dosage: UNK
     Dates: start: 2014
  5. IBRANCE [Suspect]
     Active Substance: PALBOCICLIB
     Indication: BREAST CANCER METASTATIC
     Dosage: 125 MG, CYCLIC (ONCE A DAY FOR 21 DAYS AND OFF 7)
     Route: 048
     Dates: start: 20150311, end: 201503
  6. LETROZOLE. [Suspect]
     Active Substance: LETROZOLE
     Indication: ANTIOESTROGEN THERAPY
     Dosage: UNK
     Dates: end: 201701
  7. IBRANCE [Suspect]
     Active Substance: PALBOCICLIB
     Dosage: 100 MG, UNK

REACTIONS (22)
  - Gastrointestinal necrosis [Unknown]
  - Hernia repair [Unknown]
  - Hypoacusis [Unknown]
  - Feeling abnormal [Unknown]
  - Polyuria [Not Recovered/Not Resolved]
  - Pain [Unknown]
  - Parathyroid disorder [Unknown]
  - Fear [Unknown]
  - Malaise [Not Recovered/Not Resolved]
  - Memory impairment [Recovering/Resolving]
  - Arthralgia [Unknown]
  - Blood magnesium abnormal [Recovering/Resolving]
  - Hypercalcaemia [Recovering/Resolving]
  - Fatigue [Not Recovered/Not Resolved]
  - Nervousness [Unknown]
  - Confusional state [Recovering/Resolving]
  - Gastrointestinal disorder [Unknown]
  - Tumour marker increased [Recovering/Resolving]
  - Dyspepsia [Not Recovered/Not Resolved]
  - Nightmare [Unknown]
  - Respiratory tract infection [Unknown]
  - White blood cell count decreased [Unknown]

NARRATIVE: CASE EVENT DATE: 201503
